FAERS Safety Report 8947347 (Version 1)
Quarter: 2012Q4

REPORT INFORMATION
  Report Type: 
  Country: DK (occurrence: NZ)
  Receive Date: 20121205
  Receipt Date: 20121205
  Transmission Date: 20130627
  Serious: Yes (Hospitalization)
  Sender: FDA-Public Use
  Company Number: NZ-FRI-1000040817

PATIENT
  Age: 82 Year
  Sex: Female

DRUGS (9)
  1. CITALOPRAM [Suspect]
     Dosage: 10 mg
  2. OMEPRAZOLE [Interacting]
     Dosage: 40 mg
  3. FELODIPINE [Concomitant]
  4. COLECALCIFEROL [Concomitant]
  5. CARVEDILOL [Concomitant]
  6. TRIAZOLAM [Concomitant]
  7. ALANASE NASAL SPRAY [Concomitant]
  8. ASPIRIN [Concomitant]
  9. PARACETAMOL [Concomitant]

REACTIONS (6)
  - Hypokalaemia [Unknown]
  - Hyponatraemia [Unknown]
  - Fall [Unknown]
  - Fatigue [Unknown]
  - Asthenia [Unknown]
  - Drug interaction [Unknown]
